FAERS Safety Report 23290975 (Version 5)
Quarter: 2024Q1

REPORT INFORMATION
  Report Type: Spontaneous
  Country: CH (occurrence: CH)
  Receive Date: 20231213
  Receipt Date: 20240110
  Transmission Date: 20240409
  Serious: No
  Sender: FDA-Public Use
  Company Number: CH-JNJFOC-20231152209

PATIENT
  Age: 39 Year
  Sex: Male
  Weight: 57 kg

DRUGS (4)
  1. SIMPONI [Suspect]
     Active Substance: GOLIMUMAB
     Indication: Polyarthritis
     Dosage: STRENGTH  50.00 MG / 0.50 ML
     Route: 058
     Dates: start: 201401
  2. SIMPONI [Suspect]
     Active Substance: GOLIMUMAB
  3. SIMPONI [Suspect]
     Active Substance: GOLIMUMAB
     Indication: Polyarthritis
     Dosage: 50.00 MG / 0.50 ML
     Route: 058
     Dates: start: 202311
  4. SIMPONI [Suspect]
     Active Substance: GOLIMUMAB

REACTIONS (9)
  - Device defective [Unknown]
  - Device issue [Unknown]
  - Injection site haemorrhage [Recovered/Resolved]
  - Injection site pain [Recovered/Resolved]
  - Injection site haematoma [Recovered/Resolved]
  - Underdose [Unknown]
  - Pain [Unknown]
  - Product dose omission issue [Unknown]
  - Off label use [Unknown]

NARRATIVE: CASE EVENT DATE: 20230101
